FAERS Safety Report 6574557-9 (Version None)
Quarter: 2010Q1

REPORT INFORMATION
  Report Type: 
  Country: None (occurrence: None)
  Receive Date: 20100209
  Receipt Date: 20090921
  Transmission Date: 20100710
  Serious: No
  Sender: FDA-Public Use
  Company Number: A0808294A

PATIENT
  Age: 29 Year
  Sex: Male

DRUGS (4)
  1. PAROXETINE HCL [Suspect]
     Dosage: 12.5MG PER DAY
     Route: 048
     Dates: start: 20090501
  2. DEPAKOTE [Concomitant]
  3. FISH OIL [Concomitant]
  4. MULTI-VITAMIN [Concomitant]

REACTIONS (5)
  - ANGER [None]
  - DIARRHOEA [None]
  - DYSGEUSIA [None]
  - MALAISE [None]
  - SOMNOLENCE [None]
